FAERS Safety Report 16558675 (Version 2)
Quarter: 2019Q3

REPORT INFORMATION
  Report Type: Spontaneous
  Country: KR (occurrence: KR)
  Receive Date: 20190711
  Receipt Date: 20190722
  Transmission Date: 20191004
  Serious: Yes (Death, Hospitalization, Other)
  Sender: FDA-Public Use
  Company Number: KR-009507513-1907KOR004145

PATIENT
  Sex: Male

DRUGS (11)
  1. SODIUM CHLORIDE. [Concomitant]
     Active Substance: SODIUM CHLORIDE
     Dosage: 50ML, BAG; QUANTITY 1, DAYS 3
     Dates: start: 20190610, end: 20190612
  2. TRIAXONE [Concomitant]
     Dosage: QUANTITY 1, DAYS 2
     Dates: start: 20190610, end: 20190611
  3. DEXTROSE. [Concomitant]
     Active Substance: DEXTROSE
     Dosage: QUANTITY 2, DAYS 2
     Dates: start: 20190611, end: 20190612
  4. SODIUM CHLORIDE. [Concomitant]
     Active Substance: SODIUM CHLORIDE
     Dosage: 50ML, BAG; QUANTITY 2, DAYS 2
     Dates: start: 20190611, end: 20190618
  5. HEPARIN SODIUM. [Concomitant]
     Active Substance: HEPARIN SODIUM
     Dosage: QUANTITY 2, DAYS 1
     Dates: start: 20190610
  6. SODIUM CHLORIDE. [Concomitant]
     Active Substance: SODIUM CHLORIDE
     Dosage: 1000ML; QUANTITY 1, DAYS 3
     Dates: start: 20190609, end: 20190620
  7. KEYTRUDA [Suspect]
     Active Substance: PEMBROLIZUMAB
     Indication: RETROPERITONEAL CANCER
     Dosage: QUANTITY 2, DAYS 1
     Dates: start: 20190611
  8. TRIAXONE [Concomitant]
     Dosage: QUANTITY 1, DAYS 1
     Dates: start: 20190610
  9. TRIZELE [Concomitant]
     Active Substance: METRONIDAZOLE
     Dosage: BAG; QUANTITY 3, DAYS 1
     Dates: start: 20190610
  10. TRIZELE [Concomitant]
     Active Substance: METRONIDAZOLE
     Dosage: BAG; QUANTITY 4, DAYS 1
     Dates: start: 20190611
  11. DEXTROSE. [Concomitant]
     Active Substance: DEXTROSE
     Dosage: QUANTITY 4, DAYS 1
     Dates: start: 20190610

REACTIONS (7)
  - Catheter placement [Unknown]
  - Adverse event [Unknown]
  - Product use in unapproved indication [Unknown]
  - Multiple organ dysfunction syndrome [Fatal]
  - Malignant neoplasm progression [Fatal]
  - Tumour excision [Unknown]
  - Abscess drainage [Unknown]

NARRATIVE: CASE EVENT DATE: 201906
